FAERS Safety Report 17505961 (Version 2)
Quarter: 2020Q2

REPORT INFORMATION
  Report Type: Spontaneous
  Country: US (occurrence: US)
  Receive Date: 20200305
  Receipt Date: 20200511
  Transmission Date: 20200713
  Serious: No
  Sender: FDA-Public Use
  Company Number: US-GE HEALTHCARE LIFE SCIENCES-2020CSU000764

PATIENT
  Age: 67 Year
  Sex: Male
  Weight: 86.62 kg

DRUGS (3)
  1. PROAIR HFA [Concomitant]
     Active Substance: ALBUTEROL SULFATE
  2. VISIPAQUE [Suspect]
     Active Substance: IODIXANOL
     Indication: COMPUTERISED TOMOGRAM CORONARY ARTERY
     Dosage: 100 ML AT 5 ML/SEC, SINGLE
     Route: 042
     Dates: start: 20200210, end: 20200210
  3. VISIPAQUE [Suspect]
     Active Substance: IODIXANOL
     Indication: AORTIC ANEURYSM

REACTIONS (1)
  - Contrast media reaction [Unknown]

NARRATIVE: CASE EVENT DATE: 20200210
